FAERS Safety Report 20607752 (Version 1)
Quarter: 2022Q1

REPORT INFORMATION
  Report Type: Other
  Country: US (occurrence: None)
  Receive Date: 20220317
  Receipt Date: 20220317
  Transmission Date: 20220423
  Serious: No
  Sender: FDA-Public Use
  Company Number: US-ROCHE-3052409

PATIENT
  Sex: Female

DRUGS (2)
  1. OCREVUS [Suspect]
     Active Substance: OCRELIZUMAB
     Indication: Multiple sclerosis
     Route: 065
     Dates: start: 20180604, end: 20200622
  2. COVID - 19 VACCINATION (UNK INGREDIENTS) [Concomitant]

REACTIONS (2)
  - COVID-19 [Unknown]
  - Gait inability [Unknown]
